FAERS Safety Report 21193595 (Version 2)
Quarter: 2022Q3

REPORT INFORMATION
  Report Type: Spontaneous
  Country: US (occurrence: US)
  Receive Date: 20220810
  Receipt Date: 20220816
  Transmission Date: 20221026
  Serious: No
  Sender: FDA-Public Use
  Company Number: US-BRISTOL-MYERS SQUIBB COMPANY-2022-087066

PATIENT
  Age: 71 Year
  Sex: Male

DRUGS (1)
  1. REVLIMID [Suspect]
     Active Substance: LENALIDOMIDE
     Indication: Plasma cell myeloma
     Dosage: FREQ:  EVERY DAY ON DAYS 1-21 OF EACH 28 DAY CYCLE (3 WEEKS ON, 1 WEEK OFF)
     Route: 048
     Dates: start: 20220711

REACTIONS (4)
  - Fungal infection [Unknown]
  - Rash pruritic [Unknown]
  - Sinusitis [Unknown]
  - Rash [Unknown]

NARRATIVE: CASE EVENT DATE: 20220803
